FAERS Safety Report 13148637 (Version 4)
Quarter: 2018Q4

REPORT INFORMATION
  Report Type: Spontaneous
  Country: US (occurrence: US)
  Receive Date: 20170125
  Receipt Date: 20181226
  Transmission Date: 20190204
  Serious: No
  Sender: FDA-Public Use
  Company Number: US-PFIZER INC-2017030413

PATIENT
  Age: 56 Year
  Sex: Female

DRUGS (2)
  1. SOMATULINE [Concomitant]
     Active Substance: LANREOTIDE ACETATE
     Dosage: UNK
  2. SOMAVERT [Suspect]
     Active Substance: PEGVISOMANT
     Indication: ACROMEGALY
     Dosage: 30 MG, DAILY
     Route: 058
     Dates: start: 201011

REACTIONS (7)
  - Protein total decreased [Unknown]
  - Lipohypertrophy [Unknown]
  - Eructation [Unknown]
  - Drug ineffective [Unknown]
  - Dyspepsia [Unknown]
  - Nausea [Unknown]
  - Product complaint [Unknown]

NARRATIVE: CASE EVENT DATE: 2010
